FAERS Safety Report 9525520 (Version 1)
Quarter: 2013Q1

REPORT INFORMATION
  Report Type: Spontaneous
  Country: US (occurrence: None)
  Receive Date: 20130305
  Receipt Date: 20130305
  Transmission Date: 20140127
  Serious: Yes (Hospitalization)
  Sender: FDA-Public Use
  Company Number: 163-21880-12012899

PATIENT
  Age: 73 Year
  Sex: Female

DRUGS (9)
  1. REVLIMID [Suspect]
     Indication: PLASMA CELL MYELOMA
     Route: 048
     Dates: start: 20070410
  2. OXYCODONE  (OXYCODONE) (UNKNOWN) [Concomitant]
  3. ASA (ACETYLSALICYLIC ACID) (UNKNOWN) [Concomitant]
  4. RENAGEL (SEVELAMER HYDROCHLORIDE) (UNKNOWN) [Concomitant]
  5. MIDODRINE [Concomitant]
  6. FAMOTIDINE (FAMOTIDINE) (UNKNOWN) [Concomitant]
  7. MULTIVITAMINS (MULTIVITIAMS) (UNKNOWN) [Concomitant]
  8. SYNTHROID (LEOTHYROXINE SODIUM) (UNKNOWN) [Concomitant]
  9. NEURONTIN (GABAPENTIN) (UNKNOWN) [Concomitant]

REACTIONS (1)
  - Pneumonia [None]
